FAERS Safety Report 5568452-1 (Version None)
Quarter: 2007Q4

REPORT INFORMATION
  Report Type: 
  Country: None (occurrence: None)
  Receive Date: 20071220
  Receipt Date: 20071217
  Transmission Date: 20080405
  Serious: Yes (Other)
  Sender: FDA-Public Use
  Company Number: US-AVENTIS-200721512GDDC

PATIENT
  Age: 27 Year
  Sex: Female
  Weight: 67.57 kg

DRUGS (3)
  1. LANTUS [Suspect]
     Indication: DIABETES MELLITUS
     Route: 058
     Dates: start: 20050201
  2. INSULIN LISPRO [Suspect]
     Indication: DIABETES MELLITUS
     Route: 058
     Dates: start: 19980101
  3. AUTOPEN INSULIN INJECTION PEN [Suspect]

REACTIONS (1)
  - DIABETIC KETOACIDOSIS [None]
